FAERS Safety Report 19132334 (Version 1)
Quarter: 2021Q2

REPORT INFORMATION
  Report Type: Report from Study
  Country: US (occurrence: US)
  Receive Date: 20210413
  Receipt Date: 20210413
  Transmission Date: 20210717
  Serious: Yes (Hospitalization)
  Sender: FDA-Public Use
  Company Number: US-JNJFOC-20210411676

PATIENT
  Age: 61 Year
  Sex: Female
  Weight: 54.1 kg

DRUGS (4)
  1. AMBRISENTAN [Concomitant]
     Active Substance: AMBRISENTAN
  2. DILTIAZEM. [Concomitant]
     Active Substance: DILTIAZEM
  3. TADALAFIL. [Concomitant]
     Active Substance: TADALAFIL
  4. UPTRAVI [Suspect]
     Active Substance: SELEXIPAG
     Indication: PULMONARY HYPERTENSION
     Route: 048

REACTIONS (2)
  - Vascular access malfunction [Unknown]
  - Rib fracture [Unknown]

NARRATIVE: CASE EVENT DATE: 20210402
